FAERS Safety Report 18955993 (Version 1)
Quarter: 2021Q1

REPORT INFORMATION
  Report Type: Spontaneous
  Country: US (occurrence: US)
  Receive Date: 20210301
  Receipt Date: 20210301
  Transmission Date: 20210420
  Serious: No
  Sender: FDA-Public Use
  Company Number: US-ABBVIE-21K-163-3771439-00

PATIENT
  Sex: Female

DRUGS (2)
  1. ORIAHNN [Suspect]
     Active Substance: ELAGOLIX SODIUM\ESTRADIOL\NORETHINDRONE
     Indication: MENORRHAGIA
     Dosage: AT PM
     Route: 048
  2. ORIAHNN [Suspect]
     Active Substance: ELAGOLIX SODIUM\ESTRADIOL\NORETHINDRONE
     Indication: MENORRHAGIA
     Dosage: AT AM
     Route: 048

REACTIONS (6)
  - Feeling abnormal [Unknown]
  - Gastric disorder [Unknown]
  - Headache [Unknown]
  - Discharge [Unknown]
  - Blood pressure increased [Unknown]
  - Menorrhagia [Recovered/Resolved]
